FAERS Safety Report 9984962 (Version 1)
Quarter: 2014Q1

REPORT INFORMATION
  Report Type: Spontaneous
  Country: US (occurrence: US)
  Receive Date: 20140307
  Receipt Date: 20140307
  Transmission Date: 20141002
  Serious: Yes (Other)
  Sender: FDA-Public Use
  Company Number: US-AMGEN-USASP2014015570

PATIENT
  Age: 80 Year
  Sex: Female
  Weight: 49 kg

DRUGS (6)
  1. EPOGEN [Suspect]
     Indication: PRODUCT USED FOR UNKNOWN INDICATION
     Dosage: UNK
     Route: 065
     Dates: start: 20131217
  2. VENOFER [Suspect]
     Indication: NEPHROGENIC ANAEMIA
     Dosage: 50 MG, QWK
     Route: 065
     Dates: start: 20131217
  3. VENOFER [Suspect]
     Dosage: 20 MG/ML, UNK
     Route: 040
  4. HECTOROL [Suspect]
     Indication: PRODUCT USED FOR UNKNOWN INDICATION
     Dosage: UNK
     Route: 065
     Dates: start: 20131217
  5. NATURALYTE [Concomitant]
     Dosage: UNK
  6. NORMAL SALINE [Concomitant]
     Dosage: UNK

REACTIONS (4)
  - Hypotension [Unknown]
  - Altered state of consciousness [Unknown]
  - Discomfort [Unknown]
  - Staring [Unknown]
